FAERS Safety Report 5092922-6 (Version None)
Quarter: 2006Q3

REPORT INFORMATION
  Report Type: 
  Country: None (occurrence: None)
  Receive Date: 20060726
  Receipt Date: 20060606
  Transmission Date: 20061208
  Serious: No
  Sender: FDA-Public Use
  Company Number: 012293

PATIENT
  Age: 63 Year
  Sex: Female

DRUGS (4)
  1. PRIALT [Suspect]
     Indication: TRIGEMINAL NEURALGIA
     Dosage: 0.06 UG, ONCE/HOUR, INTRATHECAL; SEE IMAGE
     Route: 037
     Dates: start: 20060530, end: 20060531
  2. PRIALT [Suspect]
     Indication: TRIGEMINAL NEURALGIA
     Dosage: 0.06 UG, ONCE/HOUR, INTRATHECAL; SEE IMAGE
     Route: 037
     Dates: start: 20060601, end: 20060602
  3. DILAUDID [Concomitant]
  4. NEURONTIN [Concomitant]

REACTIONS (7)
  - BUCCAL MUCOSAL ROUGHENING [None]
  - DIZZINESS [None]
  - DYSPHAGIA [None]
  - GAIT DISTURBANCE [None]
  - HEADACHE [None]
  - PAIN [None]
  - SWOLLEN TONGUE [None]
